FAERS Safety Report 8328536-1 (Version None)
Quarter: 2012Q2

REPORT INFORMATION
  Report Type: 
  Country: None (occurrence: None)
  Receive Date: 20120502
  Receipt Date: 20100708
  Transmission Date: 20120825
  Serious: No
  Sender: FDA-Public Use
  Company Number: US-TEVA-2010003936

PATIENT
  Sex: Female
  Weight: 69.462 kg

DRUGS (4)
  1. NUVIGIL [Suspect]
     Indication: CHRONIC FATIGUE SYNDROME
  2. NUVIGIL [Suspect]
     Indication: FIBROMYALGIA
     Dosage: 150 MILLIGRAM;
     Route: 048
     Dates: start: 20100707, end: 20100707
  3. EFFEXOR [Concomitant]
     Indication: DEPRESSION
     Dosage: 75 MILLIGRAM;
     Dates: start: 20100401, end: 20100706
  4. EFFEXOR [Concomitant]
     Indication: FIBROMYALGIA
     Dosage: 150 MILLIGRAM;
     Route: 048
     Dates: start: 20100707

REACTIONS (4)
  - PRURITUS [None]
  - PARAESTHESIA ORAL [None]
  - PARAESTHESIA [None]
  - URTICARIA [None]
